FAERS Safety Report 7414461-7 (Version None)
Quarter: 2011Q2

REPORT INFORMATION
  Report Type: 
  Country: None (occurrence: None)
  Receive Date: 20110414
  Receipt Date: 20110407
  Transmission Date: 20111010
  Serious: Yes (Other)
  Sender: FDA-Public Use
  Company Number: US-PFIZER INC-US-WYE-H11721909

PATIENT
  Sex: Female

DRUGS (2)
  1. EFFEXOR XR [Suspect]
     Dosage: UNKNOWN
     Route: 065
  2. CHANTIX [Suspect]
     Dosage: 0.5 MG, UNK
     Route: 048

REACTIONS (1)
  - SPINAL FUSION SURGERY [None]
